FAERS Safety Report 8888200 (Version 3)
Quarter: 2020Q3

REPORT INFORMATION
  Report Type: Spontaneous
  Country: FR (occurrence: FR)
  Receive Date: 20121106
  Receipt Date: 20200708
  Transmission Date: 20201103
  Serious: Yes (Hospitalization)
  Sender: FDA-Public Use
  Company Number: FR-ACTELION-A-CH2009-28242

PATIENT
  Age: 71 Year
  Sex: Female
  Weight: 63 kg

DRUGS (20)
  1. INEXIUM [Concomitant]
     Active Substance: ESOMEPRAZOLE
  2. STILNOX [Concomitant]
     Active Substance: ZOLPIDEM TARTRATE
  3. NICARDIPINE [Concomitant]
     Active Substance: NICARDIPINE
  4. ZOLPIDEM [Concomitant]
     Active Substance: ZOLPIDEM TARTRATE
  5. TRACLEER [Suspect]
     Active Substance: BOSENTAN
     Indication: SKIN ULCER
     Dosage: 125 MG, BID
     Route: 048
     Dates: start: 200909, end: 20090922
  6. COUMADIN [Concomitant]
     Active Substance: WARFARIN SODIUM
  7. OROCAL D(3) [Concomitant]
     Active Substance: CALCIUM CARBONATE\CHOLECALCIFEROL
  8. HYDROXYZINE [Concomitant]
     Active Substance: HYDROXYZINE HYDROCHLORIDE
  9. LOXEN [Concomitant]
  10. PREVISCAN [Concomitant]
  11. TRACLEER [Suspect]
     Active Substance: BOSENTAN
     Dosage: 62.5 MG, BID
     Route: 048
     Dates: start: 20090801, end: 200909
  12. PREDNISONE. [Concomitant]
     Active Substance: PREDNISONE
     Dosage: 8 MG, QD
  13. MOTILIUM [Concomitant]
     Active Substance: DOMPERIDONE
  14. RIVOTRIL [Concomitant]
     Active Substance: CLONAZEPAM
  15. TARDYFERON [Concomitant]
     Active Substance: FERROUS SULFATE
  16. ILOPROST. [Concomitant]
     Active Substance: ILOPROST
     Route: 042
  17. DOMPERIDONE [Concomitant]
     Active Substance: DOMPERIDONE
  18. OMEPRAZOLE. [Concomitant]
     Active Substance: OMEPRAZOLE
  19. CORTANCYL [Concomitant]
     Active Substance: PREDNISONE
  20. ATARAX [Concomitant]
     Active Substance: HYDROXYZINE HYDROCHLORIDE

REACTIONS (16)
  - Drug reaction with eosinophilia and systemic symptoms [Recovered/Resolved]
  - Headache [Recovered/Resolved]
  - Alanine aminotransferase increased [Recovered/Resolved]
  - Gamma-glutamyltransferase increased [Recovered/Resolved]
  - Liver function test abnormal [Recovered/Resolved]
  - Rash maculo-papular [Recovered/Resolved]
  - C-reactive protein increased [Recovered/Resolved]
  - Hepatitis [Recovered/Resolved]
  - Eosinophilia [Recovered/Resolved]
  - Pyrexia [Recovered/Resolved]
  - Systemic inflammatory response syndrome [Recovered/Resolved]
  - Rash [Recovered/Resolved]
  - Aspartate aminotransferase increased [Recovered/Resolved]
  - Therapeutic product effect incomplete [Unknown]
  - Asthenia [Recovered/Resolved]
  - Face oedema [Recovered/Resolved]

NARRATIVE: CASE EVENT DATE: 20090916
